FAERS Safety Report 14978542 (Version 1)
Quarter: 2018Q2

REPORT INFORMATION
  Report Type: Spontaneous
  Country: PL (occurrence: PL)
  Receive Date: 20180606
  Receipt Date: 20180606
  Transmission Date: 20180711
  Serious: Yes (Other)
  Sender: FDA-Public Use
  Company Number: PL-ROCHE-2134576

PATIENT
  Age: 53 Year
  Sex: Female

DRUGS (4)
  1. METYPRED [Concomitant]
     Active Substance: METHYLPREDNISOLONE
     Route: 065
  2. METOTREXATE [Concomitant]
     Active Substance: METHOTREXATE SODIUM
     Route: 065
  3. ROACTEMRA [Suspect]
     Active Substance: TOCILIZUMAB
     Indication: RHEUMATOID ARTHRITIS
     Dosage: LAST CYCLE: 2016-2017
     Route: 042
     Dates: start: 2010
  4. PLAQUENIL [Concomitant]
     Active Substance: HYDROXYCHLOROQUINE SULFATE
     Route: 065

REACTIONS (9)
  - Lymphadenopathy [Unknown]
  - Synovial cyst [Unknown]
  - Antinuclear antibody positive [Unknown]
  - Leukopenia [Unknown]
  - Deep vein thrombosis [Unknown]
  - Venous thrombosis [Unknown]
  - Ill-defined disorder [Recovered/Resolved]
  - Anaemia [Unknown]
  - Peripheral swelling [Unknown]
